FAERS Safety Report 18234702 (Version 26)
Quarter: 2024Q4

REPORT INFORMATION
  Report Type: Spontaneous
  Country: CA (occurrence: CA)
  Receive Date: 20200904
  Receipt Date: 20241017
  Transmission Date: 20250115
  Serious: Yes (Hospitalization, Other)
  Sender: CELLTRION
  Company Number: CA-CELLTRION INC.-2020CA024858

PATIENT

DRUGS (32)
  1. INFLECTRA [Suspect]
     Active Substance: INFLIXIMAB-DYYB
     Indication: Crohn^s disease
     Dosage: 600 MG WEEKS 0, 2, 6, THEN EVERY 8 WEEKS
     Route: 042
     Dates: start: 20200724, end: 20200805
  2. INFLECTRA [Suspect]
     Active Substance: INFLIXIMAB-DYYB
     Dosage: 600 MG WEEKS 0, 2, 6, THEN EVERY 8 WEEKS
     Route: 042
     Dates: start: 20200805, end: 20200805
  3. INFLECTRA [Suspect]
     Active Substance: INFLIXIMAB-DYYB
     Dosage: 400 MG AT 6 WEEKS, THEN EVERY 8 WEEKS
     Route: 042
     Dates: start: 20200910, end: 20200910
  4. INFLECTRA [Suspect]
     Active Substance: INFLIXIMAB-DYYB
     Dosage: 400 MG, AT 6 WEEKS, THEN EVERY 8 WEEKS
     Route: 042
     Dates: start: 20200910, end: 20201224
  5. INFLECTRA [Suspect]
     Active Substance: INFLIXIMAB-DYYB
     Dosage: 400 MG 6 WEEKS, THEN EVERY 8 WEEKS
     Route: 042
     Dates: start: 20201105
  6. INFLECTRA [Suspect]
     Active Substance: INFLIXIMAB-DYYB
     Dosage: 400 MG 6 WEEKS, THEN EVERY 8 WEEKS
     Route: 042
     Dates: start: 20201224
  7. INFLECTRA [Suspect]
     Active Substance: INFLIXIMAB-DYYB
     Dosage: 400 MG AT WEEK 0, 2, 6 AND THEN EVERY 4 WEEKS
     Route: 042
     Dates: start: 20210122
  8. INFLECTRA [Suspect]
     Active Substance: INFLIXIMAB-DYYB
     Dosage: 400 MG AT WEEK 0, 2, 6 AND THEN EVERY 4 WEEKS
     Route: 042
     Dates: start: 20210122, end: 20220315
  9. INFLECTRA [Suspect]
     Active Substance: INFLIXIMAB-DYYB
     Dosage: 400 MG AT WEEK 0, 2, 6 AND THEN EVERY 4 WEEKS
     Route: 042
     Dates: start: 20210224
  10. INFLECTRA [Suspect]
     Active Substance: INFLIXIMAB-DYYB
     Dosage: 400 MG AT WEEK 0, 2, 6 AND THEN EVERY 4 WEEKS
     Route: 042
     Dates: start: 20210415
  11. INFLECTRA [Suspect]
     Active Substance: INFLIXIMAB-DYYB
     Dosage: 400 MG AT WEEK 0, 2, 6 AND THEN EVERY 4 WEEKS
     Route: 042
     Dates: start: 20210513
  12. INFLECTRA [Suspect]
     Active Substance: INFLIXIMAB-DYYB
     Dosage: 400 MG AT WEEK 0, 2, 6 AND THEN EVERY 4 WEEKS
     Route: 042
     Dates: start: 20210623
  13. INFLECTRA [Suspect]
     Active Substance: INFLIXIMAB-DYYB
     Dosage: 400 MG AT WEEK 0, 2, 6 AND THEN EVERY 4 WEEKS
     Route: 042
     Dates: start: 20210722
  14. INFLECTRA [Suspect]
     Active Substance: INFLIXIMAB-DYYB
     Dosage: 400 MG AT WEEK 0, 2, 6 AND THEN EVERY 4 WEEKS
     Route: 042
     Dates: start: 20210818
  15. INFLECTRA [Suspect]
     Active Substance: INFLIXIMAB-DYYB
     Dosage: 400 MG AT WEEK 0, 2, 6 AND THEN EVERY 4 WEEKS
     Route: 042
     Dates: start: 20210916
  16. INFLECTRA [Suspect]
     Active Substance: INFLIXIMAB-DYYB
     Dosage: 400 MG AT WEEK 0, 2, 6 AND THEN EVERY 4 WEEKS
     Route: 042
     Dates: start: 20211015, end: 20211015
  17. INFLECTRA [Suspect]
     Active Substance: INFLIXIMAB-DYYB
     Dosage: 400 MG AT WEEK 0, 2, 6 AND THEN EVERY 4 WEEKS
     Route: 042
     Dates: start: 20211116
  18. INFLECTRA [Suspect]
     Active Substance: INFLIXIMAB-DYYB
     Dosage: 400 MG AT WEEK 0, 2, 6 AND THEN EVERY 4 WEEKS
     Route: 042
     Dates: start: 20220215
  19. INFLECTRA [Suspect]
     Active Substance: INFLIXIMAB-DYYB
     Dosage: 400 MG AT WEEK 0, 2, 6 AND THEN EVERY 4 WEEKS
     Route: 042
     Dates: start: 20220315
  20. INFLECTRA [Suspect]
     Active Substance: INFLIXIMAB-DYYB
     Dosage: 500 MG, EVERY 4 WEEK
     Route: 042
     Dates: start: 20220412
  21. INFLECTRA [Suspect]
     Active Substance: INFLIXIMAB-DYYB
     Dosage: 500 MG, EVERY 4 WEEK
     Route: 042
     Dates: start: 20220510
  22. INFLECTRA [Suspect]
     Active Substance: INFLIXIMAB-DYYB
     Dosage: 500 MG, EVERY 4 WEEK
     Route: 042
     Dates: start: 20220608
  23. INFLECTRA [Suspect]
     Active Substance: INFLIXIMAB-DYYB
     Dosage: 500 MG, EVERY 4 WEEK
     Route: 042
     Dates: start: 20220706
  24. INFLECTRA [Suspect]
     Active Substance: INFLIXIMAB-DYYB
     Dosage: 500 MG, EVERY 4 WEEK
     Route: 042
     Dates: start: 20221227
  25. INFLECTRA [Suspect]
     Active Substance: INFLIXIMAB-DYYB
     Dosage: 500 MG, EVERY 4 WEEK
     Route: 042
     Dates: start: 20230207
  26. INFLECTRA [Suspect]
     Active Substance: INFLIXIMAB-DYYB
     Dosage: 500 MG, EVERY 4 WEEKS
     Route: 042
     Dates: start: 20230310
  27. INFLECTRA [Suspect]
     Active Substance: INFLIXIMAB-DYYB
     Dosage: 500 MG, EVERY 4 WEEKS
     Route: 042
     Dates: start: 20231020
  28. INFLECTRA [Suspect]
     Active Substance: INFLIXIMAB-DYYB
     Dosage: 500 MG EVERY 4 WEEKS
     Route: 042
     Dates: start: 20231116
  29. INFLECTRA [Suspect]
     Active Substance: INFLIXIMAB-DYYB
     Dosage: 500 MG EVERY 4 WEEKS
     Route: 042
     Dates: start: 20231215
  30. INFLECTRA [Suspect]
     Active Substance: INFLIXIMAB-DYYB
     Dosage: 500 MG, AFTER 6 WEEKS AND 3 DAYS (EVERY 4 WEEKS)
     Route: 042
     Dates: start: 20241007
  31. METHOTREXATE [Concomitant]
     Active Substance: METHOTREXATE
     Dosage: UNK
     Route: 065
  32. METHOTREXATE [Concomitant]
     Active Substance: METHOTREXATE
     Dosage: 1 DF, UNK DOSE
     Route: 065

REACTIONS (17)
  - Intestinal obstruction [Recovered/Resolved]
  - Weight increased [Not Recovered/Not Resolved]
  - Faecal calprotectin increased [Unknown]
  - Condition aggravated [Recovered/Resolved]
  - Drug level above therapeutic [Unknown]
  - Blood pressure diastolic decreased [Unknown]
  - Mental disorder [Unknown]
  - Arthralgia [Unknown]
  - Rash papular [Recovered/Resolved]
  - Staphylococcal infection [Unknown]
  - Erythema nodosum [Recovered/Resolved]
  - Off label use [Unknown]
  - Off label use [Unknown]
  - Off label use [Unknown]
  - Intentional product use issue [Unknown]
  - Incorrect dose administered [Unknown]
  - Inappropriate schedule of product administration [Unknown]

NARRATIVE: CASE EVENT DATE: 20200101
